FAERS Safety Report 16311164 (Version 2)
Quarter: 2020Q4

REPORT INFORMATION
  Report Type: Spontaneous
  Country: US (occurrence: US)
  Receive Date: 20190514
  Receipt Date: 20201224
  Transmission Date: 20210113
  Serious: Yes (Death, Other)
  Sender: FDA-Public Use
  Company Number: US-ASTRAZENECA-2019SE63663

PATIENT
  Age: 24690 Day
  Sex: Male
  Weight: 83.9 kg

DRUGS (81)
  1. PREDNISOLONE. [Concomitant]
     Active Substance: PREDNISOLONE
  2. LORAZEPAM. [Concomitant]
     Active Substance: LORAZEPAM
  3. LEVETIRACETA [Concomitant]
     Active Substance: LEVETIRACETAM
  4. LOTENSIN [Concomitant]
     Active Substance: BENAZEPRIL HYDROCHLORIDE
  5. NARCAN [Concomitant]
     Active Substance: NALOXONE HYDROCHLORIDE
  6. HYDRALAZINE [Concomitant]
     Active Substance: HYDRALAZINE HYDROCHLORIDE
  7. MOTRIN [Concomitant]
     Active Substance: IBUPROFEN
  8. PEMBROLIZUMAB. [Concomitant]
     Active Substance: PEMBROLIZUMAB
  9. HYDROXYZINE HYDROCHLORIDE. [Concomitant]
     Active Substance: HYDROXYZINE HYDROCHLORIDE
  10. PRILOSEC [Suspect]
     Active Substance: OMEPRAZOLE MAGNESIUM
     Indication: GASTROOESOPHAGEAL REFLUX DISEASE
     Dosage: GENERIC
     Route: 065
     Dates: start: 2011, end: 20190919
  11. NEXIUM [Suspect]
     Active Substance: ESOMEPRAZOLE MAGNESIUM
     Indication: GASTROOESOPHAGEAL REFLUX DISEASE
     Route: 048
     Dates: start: 2011, end: 20190919
  12. AMOXICILLIN. [Concomitant]
     Active Substance: AMOXICILLIN
     Indication: BRONCHITIS
  13. HYDROCHLOROT [Concomitant]
     Active Substance: HYDROCHLOROTHIAZIDE
  14. CEPHALEXIN. [Concomitant]
     Active Substance: CEPHALEXIN
  15. AMMONIUM LACTATE. [Concomitant]
     Active Substance: AMMONIUM LACTATE
  16. PRILOSEC OTC [Suspect]
     Active Substance: OMEPRAZOLE MAGNESIUM
     Indication: GASTROOESOPHAGEAL REFLUX DISEASE
     Route: 048
     Dates: start: 200501, end: 201809
  17. PLAVIX [Concomitant]
     Active Substance: CLOPIDOGREL BISULFATE
     Indication: CEREBROVASCULAR ACCIDENT
  18. ASPIRIN. [Concomitant]
     Active Substance: ASPIRIN
     Indication: SENSATION OF BLOOD FLOW
  19. TUMS [Concomitant]
     Active Substance: CALCIUM CARBONATE
  20. AMLODIPINE [Concomitant]
     Active Substance: AMLODIPINE BESYLATE
  21. VIGAMOX [Concomitant]
     Active Substance: MOXIFLOXACIN HYDROCHLORIDE
  22. HYDROCODONE BITARTRATE AND ACETAMINOPHEN [Concomitant]
     Active Substance: ACETAMINOPHEN\HYDROCODONE BITARTRATE
  23. SMZ/TMP [Concomitant]
     Active Substance: SULFAMETHOXAZOLE\TRIMETHOPRIM
  24. AMLODIPINE BESYLATE. [Concomitant]
     Active Substance: AMLODIPINE BESYLATE
  25. MYDFRIN [Concomitant]
     Active Substance: PHENYLEPHRINE HYDROCHLORIDE
  26. LACTATED RINGERS SOLUTION [Concomitant]
     Active Substance: CALCIUM CHLORIDE\POTASSIUM CHLORIDE\SODIUM CHLORIDE\SODIUM LACTATE
  27. VITRASE [Concomitant]
     Active Substance: HYALURONIDASE, OVINE
  28. LIDOCAINE HYDROCHLORIDE. [Concomitant]
     Active Substance: LIDOCAINE HYDROCHLORIDE
  29. CLONIDINE HYDROCHLORIDE. [Concomitant]
     Active Substance: CLONIDINE HYDROCHLORIDE
  30. GRANISETRON HYDROCHLORIDE. [Concomitant]
     Active Substance: GRANISETRON HYDROCHLORIDE
  31. METFORMIN [Concomitant]
     Active Substance: METFORMIN HYDROCHLORIDE
  32. METOPROLOL SUCCINATE. [Concomitant]
     Active Substance: METOPROLOL SUCCINATE
  33. LEVOFLOXACIN. [Concomitant]
     Active Substance: LEVOFLOXACIN
  34. AZITHROMYCIN ANHYDROUS. [Concomitant]
     Active Substance: AZITHROMYCIN ANHYDROUS
  35. FLUTICASONE PROP [Concomitant]
     Active Substance: FLUTICASONE PROPIONATE
  36. ATROPINE. [Concomitant]
     Active Substance: ATROPINE
  37. EMLA [Concomitant]
     Active Substance: LIDOCAINE\PRILOCAINE
  38. HUMULINE [Concomitant]
  39. SODIUM CHLORIDE. [Concomitant]
     Active Substance: SODIUM CHLORIDE
  40. NORMODYNE [Concomitant]
     Active Substance: LABETALOL HYDROCHLORIDE
  41. COMPAZINE [Concomitant]
     Active Substance: PROCHLORPERAZINE MALEATE
  42. POVIDONE-IODINE. [Concomitant]
     Active Substance: POVIDONE-IODINE
  43. PANTOPRAZOLE [Suspect]
     Active Substance: PANTOPRAZOLE
     Indication: GASTROOESOPHAGEAL REFLUX DISEASE
     Dosage: GENERIC
     Route: 065
     Dates: start: 2011, end: 20190919
  44. PLAVIX [Concomitant]
     Active Substance: CLOPIDOGREL BISULFATE
     Indication: MYOCARDIAL INFARCTION
  45. LOPRESSOR [Concomitant]
     Active Substance: METOPROLOL TARTRATE
  46. ISOPTO ATROPINE [Concomitant]
     Active Substance: ATROPINE SULFATE
  47. LIDOCAINE-EPINEPHRINE [Concomitant]
     Active Substance: EPINEPHRINE\LIDOCAINE
  48. PONTOCAINE [Concomitant]
     Active Substance: TETRACAINE HYDROCHLORIDE
  49. DROPERIDOL. [Concomitant]
     Active Substance: DROPERIDOL
  50. HYDROCORTISONE. [Concomitant]
     Active Substance: HYDROCORTISONE
  51. ACIPHEX [Concomitant]
     Active Substance: RABEPRAZOLE SODIUM
  52. PRILOSEC OTC [Suspect]
     Active Substance: OMEPRAZOLE MAGNESIUM
     Indication: GASTROOESOPHAGEAL REFLUX DISEASE
     Route: 048
     Dates: start: 2011, end: 20190919
  53. PRILOSEC [Suspect]
     Active Substance: OMEPRAZOLE MAGNESIUM
     Indication: GASTROOESOPHAGEAL REFLUX DISEASE
     Route: 048
     Dates: start: 20140109, end: 20150223
  54. PREVACID 24 HR [Suspect]
     Active Substance: LANSOPRAZOLE
     Indication: GASTROOESOPHAGEAL REFLUX DISEASE
     Route: 065
     Dates: start: 2011, end: 20190919
  55. BENAZEPRIL [Concomitant]
     Active Substance: BENAZEPRIL HYDROCHLORIDE
  56. SIMVASTATIN. [Concomitant]
     Active Substance: SIMVASTATIN
  57. CLOPIDOGREL [Concomitant]
     Active Substance: CLOPIDOGREL BISULFATE
  58. ALLOPURINOL. [Concomitant]
     Active Substance: ALLOPURINOL
  59. PRED FORTE [Concomitant]
     Active Substance: PREDNISOLONE ACETATE
  60. ADRENALIN [Concomitant]
     Active Substance: EPINEPHRINE
  61. TOBRADEX [Concomitant]
     Active Substance: DEXAMETHASONE\TOBRAMYCIN
  62. DILAUDID [Concomitant]
     Active Substance: HYDROMORPHONE HYDROCHLORIDE
  63. MORPHINE SULFATE. [Concomitant]
     Active Substance: MORPHINE SULFATE
  64. CYCLOBENZAPRINE HYDROCHLORIDE. [Concomitant]
     Active Substance: CYCLOBENZAPRINE HYDROCHLORIDE
  65. FLUTICASONE FUROATE [Concomitant]
     Active Substance: FLUTICASONE FUROATE
  66. VANCOMYCIN HYDROCHLORIDE. [Concomitant]
     Active Substance: VANCOMYCIN HYDROCHLORIDE
  67. MOVANTIK [Concomitant]
     Active Substance: NALOXEGOL OXALATE
  68. PROCHLORPER [Concomitant]
  69. ONDANSETRON [Concomitant]
     Active Substance: ONDANSETRON
  70. DEXAMETHASONE. [Concomitant]
     Active Substance: DEXAMETHASONE
  71. CYCLOGYL [Concomitant]
     Active Substance: CYCLOPENTOLATE HYDROCHLORIDE
  72. LIDOCAINE. [Concomitant]
     Active Substance: LIDOCAINE
  73. SENSORCAINE [Concomitant]
     Active Substance: BUPIVACAINE HYDROCHLORIDE
  74. SUBLIMAZE [Concomitant]
     Active Substance: FENTANYL CITRATE
  75. METOCLOPRAMIDE HCL [Concomitant]
     Active Substance: METOCLOPRAMIDE HYDROCHLORIDE
  76. ONDANSETRON HYDROCHLORIDE. [Concomitant]
     Active Substance: ONDANSETRON HYDROCHLORIDE
  77. DEXTROSE. [Concomitant]
     Active Substance: DEXTROSE
  78. KETOROLAC [Concomitant]
     Active Substance: KETOROLAC TROMETHAMINE
  79. REGLAN [Concomitant]
     Active Substance: METOCLOPRAMIDE HYDROCHLORIDE
  80. VASOTEC [Concomitant]
     Active Substance: ENALAPRIL MALEATE
  81. ABILIFY [Concomitant]
     Active Substance: ARIPIPRAZOLE

REACTIONS (3)
  - Acute kidney injury [Unknown]
  - Chronic kidney disease [Unknown]
  - Renal failure [Unknown]

NARRATIVE: CASE EVENT DATE: 20120312
